FAERS Safety Report 7951595-2 (Version None)
Quarter: 2011Q4

REPORT INFORMATION
  Report Type: 
  Country: None (occurrence: None)
  Receive Date: 20111201
  Receipt Date: 20111122
  Transmission Date: 20120403
  Serious: Yes (Hospitalization)
  Sender: FDA-Public Use
  Company Number: US-ROCHE-799888

PATIENT
  Sex: Female

DRUGS (5)
  1. ANTIHYPERTENSIVE [Concomitant]
     Indication: HYPERTENSION
  2. COPEGUS [Suspect]
     Indication: HEPATITIS C
     Dosage: DOSE REDUCED
     Route: 048
  3. COPEGUS [Suspect]
     Dosage: DIVIDED DOSES
     Route: 048
  4. PEGASYS [Suspect]
     Indication: HEPATITIS C
     Route: 058
  5. INCIVEK [Suspect]
     Indication: HEPATITIS C
     Dates: start: 20110812

REACTIONS (7)
  - TRANSFUSION [None]
  - TACHYPNOEA [None]
  - FATIGUE [None]
  - HYPOTENSION [None]
  - VERTIGO [None]
  - DIZZINESS [None]
  - DYSPNOEA [None]
